FAERS Safety Report 24210962 (Version 1)
Quarter: 2024Q3

REPORT INFORMATION
  Report Type: Spontaneous
  Country: CN (occurrence: CN)
  Receive Date: 20240814
  Receipt Date: 20240814
  Transmission Date: 20241016
  Serious: Yes (Hospitalization, Other)
  Sender: AMNEAL
  Company Number: CN-AMNEAL PHARMACEUTICALS-2024-AMRX-02953

PATIENT
  Age: 60 Year
  Sex: Male

DRUGS (9)
  1. CAPECITABINE [Suspect]
     Active Substance: CAPECITABINE
     Indication: Gastric cancer
     Dosage: (1ST AND 2ND CYCLE) CAPECITABINE (CAP, 2000 MG Q.M. AND 1500 MG Q.N. ORALLY ON DAY 1-14)
     Route: 042
     Dates: start: 20210312
  2. CAPECITABINE [Suspect]
     Active Substance: CAPECITABINE
     Dosage: (3RD CYCLE) A TWICE-DAILY REGIMEN OF 1500 MG ORAL CAP TABLETS FOR ANOTHER 1 COURSE
     Route: 048
  3. CAPECITABINE [Suspect]
     Active Substance: CAPECITABINE
     Dosage: (4TH AND 5TH CYCLE) A TWICE-DAILY REGIMEN OF 1500 MG ORAL CAP TABLETS
     Route: 048
  4. CAPECITABINE [Suspect]
     Active Substance: CAPECITABINE
     Dosage: (6TH CYCLE) A TWICE-DAILY REGIMEN OF 1500MG ORAL CAP TABLETS
     Route: 048
     Dates: start: 20210726, end: 20210730
  5. CAPECITABINE [Suspect]
     Active Substance: CAPECITABINE
     Dosage: (6TH CYCLE) A TWICE-DAILY REGIMEN OF 1500MG ORAL CAP TABLETS
     Route: 048
     Dates: start: 20210812, end: 20210822
  6. OXALIPLATIN [Suspect]
     Active Substance: OXALIPLATIN
     Indication: Gastric cancer
     Dosage: (1ST AND 2ND CYCLE) OXALIPLATIN (OXP, 240 MG FOR INTRAVENOUSLY GUTTAE ON DAY 1)
     Route: 042
     Dates: start: 20210312
  7. OXALIPLATIN [Suspect]
     Active Substance: OXALIPLATIN
     Dosage: (3RD CYCLE) 230 MG DOSAGE OXP PLUS A TWICE-DAILY REGIMEN OF 1500 MG ORAL CAP TABLETS FOR ANOTHER 1 C
     Route: 048
  8. OXALIPLATIN [Suspect]
     Active Substance: OXALIPLATIN
     Dosage: (4TH AND 5TH CYCLE) 200 MG DOSAGE OXP
     Route: 048
  9. OXALIPLATIN [Suspect]
     Active Substance: OXALIPLATIN
     Dosage: (6TH CYCLE)  200MG DOSAGE OXP
     Route: 048
     Dates: start: 20210726

REACTIONS (1)
  - Myelodysplastic syndrome [Recovering/Resolving]
